FAERS Safety Report 9265853 (Version 1)
Quarter: 2013Q2

REPORT INFORMATION
  Report Type: Spontaneous
  Country: NO (occurrence: NO)
  Receive Date: 20130501
  Receipt Date: 20130501
  Transmission Date: 20140414
  Serious: Yes (Death, Hospitalization)
  Sender: FDA-Public Use
  Company Number: NO-B.I. PHARMACEUTICALS,INC./RIDGEFIELD-2013-SW-00240NO

PATIENT
  Age: 75 Year
  Sex: Male

DRUGS (7)
  1. PRADAXA [Suspect]
     Indication: ATRIAL FIBRILLATION
     Dosage: 220 MG
     Route: 048
     Dates: start: 20130306, end: 20130317
  2. SEROXAT [Suspect]
  3. SELO-ZOK [Concomitant]
  4. COZAAR COMP [Concomitant]
  5. LEVAXIN [Concomitant]
  6. FURIX [Concomitant]
  7. ZYLORIC [Concomitant]

REACTIONS (2)
  - Gastrointestinal haemorrhage [Fatal]
  - Epistaxis [Recovered/Resolved]
